FAERS Safety Report 23173166 (Version 2)
Quarter: 2023Q4

REPORT INFORMATION
  Report Type: Other
  Country: FR (occurrence: FR)
  Receive Date: 20231111
  Receipt Date: 20231201
  Transmission Date: 20240110
  Serious: Yes (Life-Threatening)
  Sender: FDA-Public Use
  Company Number: None

PATIENT
  Age: 15 Day
  Sex: Female

DRUGS (1)
  1. CUROSURF [Suspect]
     Active Substance: PORACTANT ALFA
     Indication: Neonatal respiratory distress syndrome
     Dosage: 720 MILLIGRAM, TOTAL
     Route: 007
     Dates: start: 20231019, end: 20231019

REACTIONS (1)
  - Cardio-respiratory arrest neonatal [Recovered/Resolved]

NARRATIVE: CASE EVENT DATE: 20231019
